FAERS Safety Report 25178728 (Version 1)
Quarter: 2025Q2

REPORT INFORMATION
  Report Type: Spontaneous
  Country: TR (occurrence: TR)
  Receive Date: 20250409
  Receipt Date: 20250409
  Transmission Date: 20250716
  Serious: Yes (Other)
  Sender: GLAND PHARMA
  Company Number: TR-GLANDPHARMA-TR-2025GLNLIT00928

PATIENT
  Age: 17 Year
  Sex: Female

DRUGS (1)
  1. GEMCITABINE [Suspect]
     Active Substance: GEMCITABINE
     Indication: Rhabdomyosarcoma
     Route: 042

REACTIONS (2)
  - Toxic erythema of chemotherapy [Recovered/Resolved]
  - Product use in unapproved indication [Unknown]
